FAERS Safety Report 16047661 (Version 1)
Quarter: 2019Q1

REPORT INFORMATION
  Report Type: Spontaneous
  Country: JP (occurrence: JP)
  Receive Date: 20190307
  Receipt Date: 20190307
  Transmission Date: 20190418
  Serious: Yes (Life-Threatening)
  Sender: FDA-Public Use
  Company Number: JP-PFIZER INC-2019097222

PATIENT
  Age: 84 Year
  Sex: Female
  Weight: 46.1 kg

DRUGS (9)
  1. DEXART [Concomitant]
     Active Substance: DEXAMETHASONE SODIUM PHOSPHATE
     Dosage: 6.6 MG, UNK
  2. ALOXI [Concomitant]
     Active Substance: PALONOSETRON HYDROCHLORIDE
     Dosage: 0.75 MG, UNK
     Dates: start: 20180719
  3. ISOTONIC SODIUM CHLORIDE SOLUTION [Concomitant]
     Active Substance: SODIUM CHLORIDE
     Dosage: 100 MG, UNK
  4. PACLITAXEL HOSPIRA [Suspect]
     Active Substance: PACLITAXEL
     Indication: ADENOCARCINOMA
     Dosage: 108.64 MG, DAILY
     Route: 041
     Dates: start: 20180719, end: 20180719
  5. RESTAMIN [DIPHENHYDRAMINE] [Concomitant]
     Dosage: 50 MG (5 TABLETS), UNK
  6. TEPRENONE [Concomitant]
     Active Substance: TEPRENONE
     Dosage: UNK
     Dates: start: 20180629
  7. EMEND [Concomitant]
     Active Substance: APREPITANT
     Dosage: 6.6 UNK, UNK
  8. RANITIDINE. [Concomitant]
     Active Substance: RANITIDINE
     Dosage: 50 MG, UNK
  9. LOXOPROFEN [Concomitant]
     Active Substance: LOXOPROFEN

REACTIONS (1)
  - Anaphylactic shock [Recovered/Resolved]

NARRATIVE: CASE EVENT DATE: 20180719
